FAERS Safety Report 15907880 (Version 3)
Quarter: 2019Q2

REPORT INFORMATION
  Report Type: Spontaneous
  Country: JP (occurrence: JP)
  Receive Date: 20190204
  Receipt Date: 20190422
  Transmission Date: 20190711
  Serious: Yes (Other)
  Sender: FDA-Public Use
  Company Number: JP-ASTRAZENECA-2019SE19993

PATIENT
  Age: 49 Year
  Sex: Male

DRUGS (4)
  1. OLANZAPINE. [Concomitant]
     Active Substance: OLANZAPINE
     Dosage: 20.0MG UNKNOWN
     Route: 048
  2. QUETIAPINE. [Suspect]
     Active Substance: QUETIAPINE
     Indication: SCHIZOPHRENIA
     Dosage: DOSE WAS ADJUSTED UNKNOWN
     Route: 048
  3. NITRAZEPAM [Concomitant]
     Active Substance: NITRAZEPAM
     Dosage: 10.0MG UNKNOWN
     Route: 048
  4. QUETIAPINE. [Suspect]
     Active Substance: QUETIAPINE
     Indication: SCHIZOPHRENIA
     Dosage: 200.0MG UNKNOWN
     Route: 048

REACTIONS (1)
  - Hypoglycaemia [Recovering/Resolving]
